FAERS Safety Report 9029340 (Version 1)
Quarter: 2013Q1

REPORT INFORMATION
  Report Type: Spontaneous
  Country: US (occurrence: US)
  Receive Date: 20130125
  Receipt Date: 20130125
  Transmission Date: 20140127
  Serious: Yes (Hospitalization)
  Sender: FDA-Public Use
  Company Number: US-BAYER-2013-007179

PATIENT
  Age: 33 Year
  Sex: Female

DRUGS (5)
  1. YAZ [Suspect]
     Indication: DYSMENORRHOEA
  2. VALTREX [Concomitant]
     Dosage: UNK
     Route: 048
     Dates: start: 20080417
  3. VICODIN [Concomitant]
  4. ZOFRAN [Concomitant]
  5. BACTROBAN [Concomitant]

REACTIONS (2)
  - Deep vein thrombosis [None]
  - Pulmonary embolism [Recovered/Resolved]
